FAERS Safety Report 7880658-5 (Version None)
Quarter: 2011Q4

REPORT INFORMATION
  Report Type: 
  Country: None (occurrence: None)
  Receive Date: 20111101
  Receipt Date: 20110713
  Transmission Date: 20120403
  Serious: No
  Sender: FDA-Public Use
  Company Number: US-BAYER-2011-061374

PATIENT
  Age: 53 Year
  Sex: Female

DRUGS (6)
  1. AVELOX [Suspect]
     Indication: BRONCHITIS
     Dosage: 400 MG, UNK
     Route: 048
     Dates: start: 20110704, end: 20110706
  2. SINGULAIR [Suspect]
     Dosage: UNK
     Dates: start: 20110706
  3. NEXIUM [Concomitant]
  4. FORMOTEROL FUMARATE [Suspect]
     Dosage: UNK
     Dates: start: 20110706, end: 20110711
  5. MOMETASONE FUROATE [Suspect]
     Dosage: UNK
     Dates: start: 20110706, end: 20110711
  6. CALCIUM WITH VITAMIN D [Concomitant]

REACTIONS (4)
  - TREMOR [None]
  - DIPLOPIA [None]
  - INSOMNIA [None]
  - MIGRAINE [None]
